FAERS Safety Report 9515819 (Version 1)
Quarter: 2013Q1

REPORT INFORMATION
  Report Type: Spontaneous
  Country: US (occurrence: None)
  Receive Date: 20130305
  Receipt Date: 20130305
  Transmission Date: 20140127
  Serious: Yes (Hospitalization)
  Sender: FDA-Public Use
  Company Number: 163-21880-12012135

PATIENT
  Age: 89 Year
  Sex: Female

DRUGS (11)
  1. REVLIMID [Suspect]
     Indication: PLASMA CELL MYELOMA
     Route: 048
     Dates: start: 201103, end: 2011
  2. ARANESP (DARBEPOETIN ALFA) [Concomitant]
  3. TRANDATE (LABETALOL HYDROCHLORIDE) [Concomitant]
  4. METOCLOPRAMIDE [Concomitant]
  5. NITROGLYCERIN (GLYCERYL TRINITRATE) [Concomitant]
  6. TORSEMIDE [Concomitant]
  7. LIPITOR (ATORVASTATIN) [Concomitant]
  8. KLOR-CON (POTASSIUM CHLORIDE) [Concomitant]
  9. DEXAMETHASONE [Concomitant]
  10. ISOSORBIDE MONONITRATE [Concomitant]
  11. FELODIPINE [Concomitant]

REACTIONS (2)
  - Red blood cell count decreased [None]
  - Haemoglobin decreased [None]
